FAERS Safety Report 8313113-9 (Version None)
Quarter: 2012Q2

REPORT INFORMATION
  Report Type: 
  Country: None (occurrence: None)
  Receive Date: 20120426
  Receipt Date: 20120419
  Transmission Date: 20120825
  Serious: Yes (Death, Life-Threatening, Hospitalization)
  Sender: FDA-Public Use
  Company Number: JP-PFIZER INC-2011211328

PATIENT
  Age: 59 Year
  Sex: Male
  Weight: 49 kg

DRUGS (18)
  1. TEMSIROLIMUS [Suspect]
     Indication: RENAL CELL CARCINOMA
     Dosage: 25 MG, WEEKLY
     Route: 042
     Dates: start: 20110706, end: 20110713
  2. TEMSIROLIMUS [Suspect]
     Dosage: 25 MG, WEEKLY
     Route: 042
     Dates: start: 20110804, end: 20110804
  3. ALLEGRA [Concomitant]
     Indication: PROPHYLAXIS
     Dosage: 60 MG, WEEKLY
     Route: 048
     Dates: start: 20110719, end: 20110719
  4. ALLEGRA [Concomitant]
     Dosage: 60 MG, WEEKLY
     Route: 048
     Dates: start: 20110825, end: 20110825
  5. DICLOFENAC SODIUM [Concomitant]
     Dosage: 25 MG, AS NEEDED
     Route: 048
  6. TEMSIROLIMUS [Suspect]
     Dosage: 25 MG, WEEKLY
     Route: 042
     Dates: start: 20110818, end: 20110818
  7. ALLEGRA [Concomitant]
     Dosage: 60 MG, WEEKLY
     Route: 048
     Dates: start: 20110804, end: 20110804
  8. CANDESARTAN CILEXETIL [Concomitant]
     Dosage: 4 MG, 1X/DAY
     Route: 048
  9. TEMSIROLIMUS [Suspect]
     Dosage: 25 MG, WEEKLY
     Route: 042
     Dates: start: 20110825, end: 20110825
  10. MENATETRENONE [Concomitant]
     Dosage: 15 MG/DAY
     Route: 048
     Dates: end: 20110809
  11. FOSAMAX [Concomitant]
     Dosage: 35 MG, WEEKLY
     Route: 048
     Dates: end: 20110809
  12. ALLEGRA [Concomitant]
     Dosage: 60 MG, WEEKLY
     Route: 048
     Dates: start: 20110811, end: 20110811
  13. NAPROXEN [Concomitant]
     Indication: PYREXIA
     Dosage: 100 MG/DAY
     Route: 048
  14. CELOOP [Concomitant]
     Dosage: 50 MG/DAY
     Route: 048
  15. TEMSIROLIMUS [Suspect]
     Dosage: 25 MG, WEEKLY
     Route: 042
     Dates: start: 20110811, end: 20110811
  16. ALLEGRA [Concomitant]
     Dosage: 60 MG, WEEKLY
     Route: 048
     Dates: start: 20110818, end: 20110818
  17. TEMSIROLIMUS [Suspect]
     Dosage: 25 MG, WEEKLY
     Route: 042
     Dates: start: 20110719, end: 20110719
  18. ANYRUME S [Concomitant]
     Dosage: 500 MG, AS NEEDED
     Route: 048

REACTIONS (10)
  - DEEP VEIN THROMBOSIS [None]
  - SHUNT INFECTION [None]
  - SEPSIS [None]
  - PYREXIA [None]
  - RENAL CELL CARCINOMA [None]
  - SPUTUM RETENTION [None]
  - RESPIRATORY DEPRESSION [None]
  - PNEUMONIA BACTERIAL [None]
  - DISEASE PROGRESSION [None]
  - DEPRESSED LEVEL OF CONSCIOUSNESS [None]
